FAERS Safety Report 23286852 (Version 1)
Quarter: 2023Q4

REPORT INFORMATION
  Report Type: Spontaneous
  Country: DE (occurrence: DE)
  Receive Date: 20231212
  Receipt Date: 20231212
  Transmission Date: 20240109
  Serious: Yes (Other)
  Sender: FDA-Public Use
  Company Number: DE-DCGMA-23202149

PATIENT
  Age: 57 Year
  Sex: Female

DRUGS (1)
  1. AMOXICILLIN\CLAVULANIC ACID [Suspect]
     Active Substance: AMOXICILLIN\CLAVULANIC ACID
     Indication: Dental care
     Dosage: UNK (875/125 MG)
     Route: 048
     Dates: end: 20230829

REACTIONS (3)
  - Drug-induced liver injury [Recovered/Resolved]
  - Somnolence [Recovered/Resolved]
  - Pruritus [Recovered/Resolved]

NARRATIVE: CASE EVENT DATE: 20230908
